FAERS Safety Report 16811266 (Version 3)
Quarter: 2019Q4

REPORT INFORMATION
  Report Type: Spontaneous
  Country: NL (occurrence: NL)
  Receive Date: 20190916
  Receipt Date: 20191030
  Transmission Date: 20200122
  Serious: Yes (Other)
  Sender: FDA-Public Use
  Company Number: NL-ROCHE-2412560

PATIENT
  Age: 52 Year
  Sex: Female

DRUGS (6)
  1. RIBAVIRIN. [Suspect]
     Active Substance: RIBAVIRIN
     Indication: HEPATITIS E
     Route: 065
  2. PREDNISONE. [Suspect]
     Active Substance: PREDNISONE
     Indication: PROPHYLAXIS AGAINST TRANSPLANT REJECTION
     Route: 065
  3. MYCOPHENOLATE MOFETIL. [Suspect]
     Active Substance: MYCOPHENOLATE MOFETIL
     Indication: PROPHYLAXIS AGAINST TRANSPLANT REJECTION
     Route: 065
  4. SIROLIMUS. [Suspect]
     Active Substance: SIROLIMUS
     Indication: PROPHYLAXIS AGAINST TRANSPLANT REJECTION
     Route: 065
  5. RIBAVIRIN. [Suspect]
     Active Substance: RIBAVIRIN
     Route: 065
  6. RIBAVIRIN. [Suspect]
     Active Substance: RIBAVIRIN
     Route: 065

REACTIONS (5)
  - Hepatic cirrhosis [Unknown]
  - Intentional product use issue [Unknown]
  - Anaemia [Unknown]
  - Hepatitis E [Unknown]
  - Off label use [Unknown]
